FAERS Safety Report 25637731 (Version 1)
Quarter: 2025Q3

REPORT INFORMATION
  Report Type: Spontaneous
  Country: EU (occurrence: EU)
  Receive Date: 20250804
  Receipt Date: 20250804
  Transmission Date: 20251020
  Serious: Yes (Life-Threatening)
  Sender: SAMSUNG BIOEPIS
  Company Number: None

PATIENT
  Age: 16 Year
  Sex: Female
  Weight: 57 kg

DRUGS (6)
  1. INFLIXIMAB [Suspect]
     Active Substance: INFLIXIMAB
     Indication: Colitis ulcerative
     Route: 042
     Dates: start: 20230717, end: 20230717
  2. IMURAN 50 MG COATED TABLETS [Concomitant]
     Indication: Product used for unknown indication
  3. ASAMAX 500 500 MG ENTERIC-RESISTANT TABLETS [Concomitant]
     Indication: Product used for unknown indication
  4. NEUROVIT 100 MG + 200 MG + 0.20 MG COATED TABLETS POWLEKANE [Concomitant]
     Indication: Product used for unknown indication
  5. VIGANTOL 500 MICROGRAMS/ML (20,000 IU) ORAL DROPS, SOLUTION [Concomitant]
     Indication: Product used for unknown indication
  6. CALPEROS 1000, 400 MG CALCIUM IONS, HARD CAPSULES [Concomitant]
     Indication: Product used for unknown indication

REACTIONS (6)
  - Anaphylactic reaction [Recovered/Resolved]
  - Vomiting [Recovered/Resolved]
  - Throat irritation [Recovered/Resolved]
  - Dyspnoea [Recovered/Resolved]
  - Face oedema [Recovered/Resolved]
  - Erythema [Recovered/Resolved]

NARRATIVE: CASE EVENT DATE: 20230717
